FAERS Safety Report 6681003-3 (Version None)
Quarter: 2010Q2

REPORT INFORMATION
  Report Type: 
  Country: None (occurrence: None)
  Receive Date: 20100414
  Receipt Date: 20100406
  Transmission Date: 20101027
  Serious: Yes (Other)
  Sender: FDA-Public Use
  Company Number: BR-PFIZER INC-2010043779

PATIENT

DRUGS (1)
  1. IDARUBICIN HCL [Suspect]
     Route: 042

REACTIONS (4)
  - HYPERAEMIA [None]
  - HYPERTENSION [None]
  - OXYGEN SATURATION DECREASED [None]
  - TREMOR [None]
